FAERS Safety Report 5314416-2 (Version None)
Quarter: 2007Q2

REPORT INFORMATION
  Report Type: 
  Country: None (occurrence: None)
  Receive Date: 20070502
  Receipt Date: 20070426
  Transmission Date: 20071010
  Serious: Yes (Hospitalization)
  Sender: FDA-Public Use
  Company Number: ES-BRISTOL-MYERS SQUIBB COMPANY-13765599

PATIENT
  Age: 64 Year
  Sex: Male

DRUGS (4)
  1. CETUXIMAB [Suspect]
     Indication: COLORECTAL CANCER
     Route: 042
     Dates: start: 20070416, end: 20070416
  2. OXALIPLATIN [Suspect]
     Indication: COLORECTAL CANCER
     Route: 042
     Dates: start: 20070416, end: 20070416
  3. FOLINIC ACID [Suspect]
     Indication: COLORECTAL CANCER
     Route: 042
     Dates: start: 20070417, end: 20070417
  4. FLUOROURACIL [Suspect]
     Indication: COLORECTAL CANCER
     Route: 042
     Dates: start: 20070417, end: 20070417

REACTIONS (1)
  - NEUTROPENIA [None]
